FAERS Safety Report 7656898-7 (Version None)
Quarter: 2011Q3

REPORT INFORMATION
  Report Type: 
  Country: None (occurrence: None)
  Receive Date: 20110804
  Receipt Date: 20110728
  Transmission Date: 20111222
  Serious: Yes (Other)
  Sender: FDA-Public Use
  Company Number: JP-CEPHALON-2011003530

PATIENT
  Age: 66 Year
  Sex: Male

DRUGS (3)
  1. BENDAMUSTINE HCL [Suspect]
     Route: 042
     Dates: start: 20110705, end: 20110706
  2. BENDAMUSTINE HCL [Suspect]
     Route: 042
     Dates: start: 20110518, end: 20110519
  3. SULFAMETHOXAZOLE AND TRIMETHOPRIM [Concomitant]

REACTIONS (4)
  - COUGH [None]
  - HYPOAESTHESIA [None]
  - PLATELET COUNT DECREASED [None]
  - ABDOMINAL PAIN [None]
